FAERS Safety Report 5634398-3 (Version None)
Quarter: 2008Q1

REPORT INFORMATION
  Report Type: 
  Country: None (occurrence: None)
  Receive Date: 20080222
  Receipt Date: 20080212
  Transmission Date: 20080703
  Serious: No
  Sender: FDA-Public Use
  Company Number: DE-ELI_LILLY_AND_COMPANY-DE200802003810

PATIENT
  Age: 60 Year
  Sex: Male

DRUGS (1)
  1. CIALIS [Suspect]
     Dosage: 10 MG, UNKNOWN
     Route: 065

REACTIONS (1)
  - CYANOPSIA [None]
